FAERS Safety Report 16429364 (Version 1)
Quarter: 2019Q2

REPORT INFORMATION
  Report Type: Report from Study
  Country: None (occurrence: TR)
  Receive Date: 20190614
  Receipt Date: 20190614
  Transmission Date: 20190711
  Serious: Yes (Death)
  Sender: FDA-Public Use
  Company Number: TR-ABBVIE-19S-161-2820256-00

PATIENT
  Age: 80 Year
  Sex: Male
  Weight: 64 kg

DRUGS (1)
  1. DUODOPA [Suspect]
     Active Substance: CARBIDOPA\LEVODOPA
     Indication: PARKINSON^S DISEASE
     Dosage: MD(ML):8.00 CD(ML):3.00 ED(ML):1.00
     Route: 050
     Dates: start: 20170314

REACTIONS (1)
  - Death [Fatal]

NARRATIVE: CASE EVENT DATE: 20190524
